FAERS Safety Report 6104897-9 (Version None)
Quarter: 2009Q1

REPORT INFORMATION
  Report Type: 
  Country: None (occurrence: None)
  Receive Date: 20090306
  Receipt Date: 20090227
  Transmission Date: 20090719
  Serious: Yes (Other)
  Sender: FDA-Public Use
  Company Number: TR-ASTRAZENECA-2009AC00695

PATIENT
  Age: 7 Month
  Sex: Male

DRUGS (6)
  1. MEROPENEM [Suspect]
     Indication: PNEUMONIA
     Route: 042
  2. TEICOPLANIN [Suspect]
     Indication: PNEUMONIA
     Route: 065
  3. FLUCANOZOLE [Suspect]
     Indication: PNEUMONIA
     Route: 065
  4. FUROSEMID [Concomitant]
  5. PHENOBARBITAL TAB [Concomitant]
     Indication: CONVULSION
  6. PHENYTOIN [Concomitant]
     Indication: CONVULSION

REACTIONS (1)
  - FUNGAL PERITONITIS [None]
